FAERS Safety Report 8441332 (Version 3)
Quarter: 2012Q4

REPORT INFORMATION
  Report Type: 
  Country: US (occurrence: US)
  Receive Date: 20120305
  Receipt Date: 20120913
  Transmission Date: 20130627
  Serious: Yes (Hospitalization)
  Sender: FDA-Public Use
  Company Number: US-BAYER-2012-019021

PATIENT
  Age: 38 Year
  Sex: Female
  Weight: 70.3 kg

DRUGS (11)
  1. YAZ [Suspect]
     Indication: CONTRACEPTION
     Dosage: UNK
     Route: 048
     Dates: start: 2004, end: 20081029
  2. LEVAQUIN [Concomitant]
     Dosage: UNK
     Dates: start: 20080822
  3. NORCO [Concomitant]
     Dosage: UNK
     Dates: start: 20081014
  4. IBUPROFEN [Concomitant]
     Dosage: 600 mg, UNK
     Dates: start: 20081014
  5. CLARITIN [Concomitant]
     Dosage: 10 mg, UNK
     Dates: start: 20081014
  6. SYMBICORT [Concomitant]
     Dosage: UNK UNK, PRN
     Dates: start: 20081014
  7. ALBUTEROL [Concomitant]
     Dosage: 2 puffs as needed
     Dates: start: 20081014
  8. VICODIN [Concomitant]
  9. CHERATUSSIN [CODEINE,GUAIFENESIN,PSEUDOEPHEDRINE] [Concomitant]
     Dosage: UNK
     Route: 048
     Dates: start: 20080808
  10. AZITHROMYCIN [Concomitant]
     Dosage: 250 mg, UNK
     Route: 048
     Dates: start: 20080808
  11. TYLENOL [Concomitant]

REACTIONS (2)
  - Deep vein thrombosis [Recovered/Resolved]
  - Pulmonary embolism [None]
